FAERS Safety Report 8121029-6 (Version None)
Quarter: 2012Q1

REPORT INFORMATION
  Report Type: 
  Country: None (occurrence: None)
  Receive Date: 20120203
  Receipt Date: 20120119
  Transmission Date: 20120608
  Serious: Yes (Other)
  Sender: FDA-Public Use
  Company Number: COL_10784_2012

PATIENT
  Sex: Male

DRUGS (1)
  1. COLGATE MAXIMUM CAVITY PROTECTION GREAT REGULAR FLAVOUR TOOTHPASTE [Suspect]
     Indication: DENTAL CARIES
     Dosage: (ABOUT AN INCH/ONCE/ORAL)
     Route: 048
     Dates: start: 20120117, end: 20120117

REACTIONS (6)
  - ORAL DISCOMFORT [None]
  - PARAESTHESIA ORAL [None]
  - CHEST PAIN [None]
  - OROPHARYNGEAL PAIN [None]
  - OESOPHAGEAL PAIN [None]
  - MYOCARDIAL INFARCTION [None]
